FAERS Safety Report 4302202-1 (Version None)
Quarter: 2004Q1

REPORT INFORMATION
  Report Type: 
  Country: None (occurrence: None)
  Receive Date: 20040220
  Receipt Date: 20040209
  Transmission Date: 20041129
  Serious: Yes (Death)
  Sender: FDA-Public Use
  Company Number: NL-JNJFOC-20040203033

PATIENT
  Sex: 0

DRUGS (1)
  1. INFLIXIMAB (RECOMBINANT)  LYOPHILIZED POWDER [Suspect]
     Indication: RHEUMATOID ARTHRITIS
     Dosage: INTRAVENOUS

REACTIONS (1)
  - DEATH [None]
